FAERS Safety Report 10655006 (Version 1)
Quarter: 2014Q4

REPORT INFORMATION
  Report Type: Report from Study
  Country: GR (occurrence: GR)
  Receive Date: 20141216
  Receipt Date: 20141216
  Transmission Date: 20150529
  Serious: Yes (Life-Threatening)
  Sender: FDA-Public Use
  Company Number: GR-ASTRAZENECA-2014SE94186

PATIENT
  Sex: Male

DRUGS (1)
  1. BUDESONIDE/FORMOTEROL [Suspect]
     Active Substance: BUDESONIDE\FORMOTEROL
     Indication: ASTHMA
     Dosage: UNKNOWN STRENGTH WITH UNKNOWN FREQUENCY
     Route: 055

REACTIONS (2)
  - Upper airway obstruction [Unknown]
  - Angioedema [Unknown]
